FAERS Safety Report 14056285 (Version 1)
Quarter: 2017Q4

REPORT INFORMATION
  Report Type: Spontaneous
  Country: RU (occurrence: RU)
  Receive Date: 20171006
  Receipt Date: 20171006
  Transmission Date: 20180321
  Serious: Yes (Death)
  Sender: FDA-Public Use
  Company Number: PHHY2017RU146065

PATIENT
  Age: 29 Year
  Sex: Female

DRUGS (2)
  1. AFINITOR [Suspect]
     Active Substance: EVEROLIMUS
     Indication: METASTATIC RENAL CELL CARCINOMA
     Dosage: 5 MG, QD
     Route: 048
     Dates: start: 20170528, end: 20170715
  2. LENVATINIB [Suspect]
     Active Substance: LENVATINIB
     Indication: METASTATIC RENAL CELL CARCINOMA
     Dosage: 18 MG, QD
     Route: 048
     Dates: start: 20170528, end: 20170715

REACTIONS (4)
  - Peritonitis [Fatal]
  - Intestinal metastasis [Fatal]
  - Multiple organ dysfunction syndrome [Fatal]
  - Large intestine perforation [Fatal]
